FAERS Safety Report 8558305-9 (Version None)
Quarter: 2012Q3

REPORT INFORMATION
  Report Type: 
  Country: None (occurrence: None)
  Receive Date: 20120801
  Receipt Date: 20120711
  Transmission Date: 20120928
  Serious: Yes (Other)
  Sender: FDA-Public Use
  Company Number: DE-009507513-2012SP027896

PATIENT

DRUGS (3)
  1. NOMEGESTROL ACETATE/ESTRADIOL [Suspect]
     Indication: CONTRACEPTION
     Dosage: UNK
     Route: 048
     Dates: start: 20120301, end: 20120401
  2. LEVOTHYROXINE SODIUM [Concomitant]
     Indication: HYPOTHYROIDISM
     Dosage: 75 MICROGRAM, QD
     Route: 048
  3. METOPROLOL TARTRATE [Concomitant]
     Indication: ARRHYTHMIA
     Dosage: UNK, BID
     Route: 048

REACTIONS (2)
  - DYSPNOEA [None]
  - ANGINA PECTORIS [None]
